FAERS Safety Report 16224254 (Version 1)
Quarter: 2019Q2

REPORT INFORMATION
  Report Type: Spontaneous
  Country: US (occurrence: US)
  Receive Date: 20190422
  Receipt Date: 20190422
  Transmission Date: 20190711
  Serious: Yes (Other)
  Sender: FDA-Public Use
  Company Number: US-ASTRAZENECA-2019SE00658

PATIENT
  Age: 28928 Day
  Sex: Male
  Weight: 70.3 kg

DRUGS (7)
  1. BEVESPI AEROSPHERE [Suspect]
     Active Substance: FORMOTEROL FUMARATE\GLYCOPYRROLATE
     Indication: PULMONARY FIBROSIS
     Dosage: 9 MCG / 4.8 MCG TWO PUFFS TWICE DAILY
     Route: 055
     Dates: start: 20181222
  2. DONEPEZIL HYDROCHLORIDE. [Concomitant]
     Active Substance: DONEPEZIL HYDROCHLORIDE
     Indication: DEMENTIA
     Route: 048
  3. METOPROLOL SUCCINATE. [Suspect]
     Active Substance: METOPROLOL SUCCINATE
     Route: 048
  4. BEVESPI AEROSPHERE [Suspect]
     Active Substance: FORMOTEROL FUMARATE\GLYCOPYRROLATE
     Indication: CHRONIC OBSTRUCTIVE PULMONARY DISEASE
     Dosage: 9 MCG / 4.8 MCG TWO PUFFS TWICE DAILY
     Route: 055
     Dates: start: 20181222
  5. ATORVASTATIN [Concomitant]
     Active Substance: ATORVASTATIN
     Route: 048
  6. TAMSULOSIN [Concomitant]
     Active Substance: TAMSULOSIN
     Indication: MICTURITION DISORDER
     Route: 048
  7. VENTOLIN HFA [Concomitant]
     Active Substance: ALBUTEROL SULFATE
     Indication: CHRONIC OBSTRUCTIVE PULMONARY DISEASE
     Dosage: AS REQUIRED
     Route: 055

REACTIONS (13)
  - Chronic obstructive pulmonary disease [Unknown]
  - Product use in unapproved indication [Unknown]
  - Snoring [Unknown]
  - Skin papilloma [Unknown]
  - Off label use [Unknown]
  - Sleep apnoea syndrome [Unknown]
  - Prostatomegaly [Unknown]
  - Eye swelling [Unknown]
  - Pulmonary fibrosis [Unknown]
  - Skin disorder [Unknown]
  - Eye haemorrhage [Unknown]
  - Dementia [Unknown]
  - Body height decreased [Unknown]

NARRATIVE: CASE EVENT DATE: 20160802
